FAERS Safety Report 13945143 (Version 2)
Quarter: 2017Q3

REPORT INFORMATION
  Report Type: Spontaneous
  Country: RU (occurrence: RU)
  Receive Date: 20170907
  Receipt Date: 20170907
  Transmission Date: 20171128
  Serious: Yes (Death)
  Sender: FDA-Public Use
  Company Number: RU-BAYER-2016-140076

PATIENT
  Age: 66 Year
  Sex: Male
  Weight: 96 kg

DRUGS (2)
  1. ULTRAVIST [Suspect]
     Active Substance: IOPROMIDE
     Indication: ARTERIOSCLEROSIS
     Dosage: UNK UNK, ONCE
     Route: 013
     Dates: start: 20160127, end: 20160127
  2. ULTRAVIST [Suspect]
     Active Substance: IOPROMIDE
     Indication: ARTERIOGRAM CORONARY

REACTIONS (12)
  - Dyspnoea [Fatal]
  - Respiratory failure [Fatal]
  - Conduction disorder [Fatal]
  - Rales [Fatal]
  - Psychomotor hyperactivity [Fatal]
  - Myocardial infarction [Fatal]
  - Renal failure [Fatal]
  - Brain injury [Fatal]
  - Pulmonary oedema [Fatal]
  - Arrhythmia [Fatal]
  - Pulmonary oedema [Fatal]
  - Cardiogenic shock [Fatal]

NARRATIVE: CASE EVENT DATE: 20160127
